FAERS Safety Report 24311425 (Version 2)
Quarter: 2024Q4

REPORT INFORMATION
  Report Type: Spontaneous
  Country: ZA (occurrence: ZA)
  Receive Date: 20240912
  Receipt Date: 20241001
  Transmission Date: 20250115
  Serious: Yes (Death, Other)
  Sender: NOVARTIS
  Company Number: ZA-002147023-NVSC2023ZA112500

PATIENT
  Age: 36 Year
  Sex: Female

DRUGS (1)
  1. RIBOCICLIB [Suspect]
     Active Substance: RIBOCICLIB
     Indication: Breast cancer metastatic
     Dosage: UNK
     Route: 065
     Dates: start: 20230103, end: 20230509

REACTIONS (15)
  - Death [Fatal]
  - Metastases to central nervous system [Unknown]
  - Intestinal metastasis [Unknown]
  - Metastases to bone [Unknown]
  - Breast cancer metastatic [Unknown]
  - Malignant neoplasm progression [Unknown]
  - Tumour marker increased [Unknown]
  - Ear pain [Unknown]
  - Anxiety [Unknown]
  - Weight increased [Unknown]
  - Abdominal pain upper [Unknown]
  - Insomnia [Unknown]
  - Alopecia [Unknown]
  - Nausea [Unknown]
  - Headache [Unknown]
